FAERS Safety Report 17907061 (Version 1)
Quarter: 2020Q2

REPORT INFORMATION
  Report Type: Spontaneous
  Country: GR (occurrence: GR)
  Receive Date: 20200617
  Receipt Date: 20200617
  Transmission Date: 20200714
  Serious: Yes (Death, Other)
  Sender: FDA-Public Use
  Company Number: GR-ACCORD-185414

PATIENT
  Age: 66 Year
  Sex: Female

DRUGS (1)
  1. METHOTREXATE. [Suspect]
     Active Substance: METHOTREXATE
     Indication: T-CELL LYMPHOMA
     Dosage: OTHER
     Route: 050

REACTIONS (5)
  - Keratopathy [Not Recovered/Not Resolved]
  - Cataract [Not Recovered/Not Resolved]
  - Incorrect route of product administration [Unknown]
  - Visual impairment [Unknown]
  - Lymphoma [Fatal]
